FAERS Safety Report 7362628-9 (Version None)
Quarter: 2011Q1

REPORT INFORMATION
  Report Type: 
  Country: None (occurrence: None)
  Receive Date: 20110320
  Receipt Date: 20100909
  Transmission Date: 20110831
  Serious: Yes (Other)
  Sender: FDA-Public Use
  Company Number: US-BAYER-201012261NA

PATIENT
  Weight: 86.168 kg

DRUGS (9)
  1. PAXIL [Concomitant]
  2. PRILOSEC [Concomitant]
  3. YAZ [Suspect]
     Indication: MENSTRUAL CYCLE MANAGEMENT
  4. RELPAX [Concomitant]
  5. AMOXIL [Concomitant]
  6. LAMISIL [Concomitant]
  7. TUSSIONEX [Concomitant]
  8. DIFLUCAN [Concomitant]
  9. YAZ [Suspect]
     Indication: CONTRACEPTION
     Dosage: UNK
     Dates: start: 20031001, end: 20091001

REACTIONS (12)
  - ABDOMINAL PAIN UPPER [None]
  - NAUSEA [None]
  - GASTROOESOPHAGEAL REFLUX DISEASE [None]
  - GALLBLADDER DISORDER [None]
  - QUALITY OF LIFE DECREASED [None]
  - PAIN [None]
  - PROCEDURAL PAIN [None]
  - VOMITING [None]
  - ANXIETY [None]
  - CHOLECYSTITIS CHRONIC [None]
  - GALLBLADDER CHOLESTEROLOSIS [None]
  - DISCOMFORT [None]
